FAERS Safety Report 15848329 (Version 4)
Quarter: 2019Q1

REPORT INFORMATION
  Report Type: Spontaneous
  Country: US (occurrence: US)
  Receive Date: 20190121
  Receipt Date: 20190326
  Transmission Date: 20190417
  Serious: No
  Sender: FDA-Public Use
  Company Number: US-PFIZER INC-2019026149

PATIENT
  Age: 65 Year
  Sex: Female
  Weight: 81.63 kg

DRUGS (9)
  1. DIGOXIN. [Concomitant]
     Active Substance: DIGOXIN
     Indication: CARDIAC DISORDER
  2. METHOTREXATE. [Concomitant]
     Active Substance: METHOTREXATE
     Indication: RHEUMATOID ARTHRITIS
     Dosage: 4 DF, WEEKLY
     Route: 048
     Dates: start: 2014
  3. WARFARIN [Concomitant]
     Active Substance: WARFARIN
     Indication: COAGULOPATHY
     Dosage: UNK UNK, DAILY (4-6 MILLIGRAM TABLETS BY MOUTH DAILY; DOSE IS ADJUSTED PERIODICALLY WHEN SHE GETS)
     Route: 048
     Dates: start: 2011
  4. WARFARIN [Concomitant]
     Active Substance: WARFARIN
     Indication: ANTICOAGULANT THERAPY
  5. XELJANZ [Suspect]
     Active Substance: TOFACITINIB CITRATE
     Indication: RHEUMATOID ARTHRITIS
     Dosage: 5 MG, 2X/DAY
     Route: 048
  6. LOSARTAN. [Concomitant]
     Active Substance: LOSARTAN
     Indication: CARDIAC DISORDER
     Dosage: 25 MG, 1X/DAY
     Route: 048
  7. DIGOXIN. [Concomitant]
     Active Substance: DIGOXIN
     Indication: CARDIOMYOPATHY
     Dosage: 0.25 MG, 1X/DAY
     Route: 048
     Dates: start: 2011
  8. ASPIRIN [ACETYLSALICYLIC ACID] [Concomitant]
     Active Substance: ASPIRIN
     Indication: AORTIC VALVE REPLACEMENT
     Dosage: 81 MG, 1X/DAY
     Route: 048
     Dates: start: 2011
  9. PLAQUENIL [Concomitant]
     Active Substance: HYDROXYCHLOROQUINE SULFATE
     Indication: RHEUMATOID ARTHRITIS
     Dosage: 200 MG, 2X/DAY
     Route: 048

REACTIONS (2)
  - Upper respiratory tract infection [Unknown]
  - Oropharyngeal pain [Unknown]
